FAERS Safety Report 10146148 (Version 1)
Quarter: 2014Q2

REPORT INFORMATION
  Report Type: Spontaneous
  Country: US (occurrence: None)
  Receive Date: 20140430
  Receipt Date: 20140430
  Transmission Date: 20141212
  Serious: Yes (Hospitalization)
  Sender: FDA-Public Use
  Company Number: None

PATIENT
  Age: 64 Year
  Sex: Male

DRUGS (2)
  1. SOVALDI [Suspect]
     Route: 048
  2. RIBAVIRIN [Concomitant]

REACTIONS (2)
  - Confusional state [None]
  - Musculoskeletal stiffness [None]
